FAERS Safety Report 8848584 (Version 1)
Quarter: 2012Q4

REPORT INFORMATION
  Report Type: 
  Country: US (occurrence: US)
  Receive Date: 20121018
  Receipt Date: 20121018
  Transmission Date: 20130627
  Serious: Yes (Death)
  Sender: FDA-Public Use
  Company Number: US-ROXANE LABORATORIES, INC.-2012-EU-05185GD

PATIENT
  Age: 36 Year
  Sex: Male

DRUGS (4)
  1. MORPHINE [Suspect]
  2. IBOGAINE [Suspect]
     Indication: DRUG DETOXIFICATION
     Dosage: 16 - 20 mg/kg
  3. IBOGAINE [Suspect]
     Indication: DRUG DEPENDENCE
  4. OPIATES [Suspect]

REACTIONS (1)
  - Toxicity to various agents [Fatal]
